FAERS Safety Report 7767751-2 (Version None)
Quarter: 2011Q3

REPORT INFORMATION
  Report Type: 
  Country: None (occurrence: None)
  Receive Date: 20110922
  Receipt Date: 20100909
  Transmission Date: 20111222
  Serious: No
  Sender: FDA-Public Use
  Company Number: US-ASTRAZENECA-2010SE42503

PATIENT
  Age: 228 Month
  Sex: Male

DRUGS (1)
  1. SEROQUEL [Suspect]
     Indication: SCHIZOPHRENIA
     Route: 048
     Dates: start: 20100201, end: 20100801

REACTIONS (4)
  - DRUG RESISTANCE [None]
  - LOGORRHOEA [None]
  - HALLUCINATION, AUDITORY [None]
  - DRUG INEFFECTIVE [None]
